FAERS Safety Report 10266851 (Version 1)
Quarter: 2014Q2

REPORT INFORMATION
  Report Type: Report from Study
  Country: US (occurrence: US)
  Receive Date: 20140630
  Receipt Date: 20140630
  Transmission Date: 20141212
  Serious: Yes (Other)
  Sender: FDA-Public Use
  Company Number: US-JNJFOC-20140612193

PATIENT
  Sex: 0

DRUGS (1)
  1. TYLENOL PM EXTRA STRENGTH [Suspect]
     Indication: INSOMNIA
     Route: 048

REACTIONS (3)
  - Drug dependence [Unknown]
  - Adverse event [Unknown]
  - Drug ineffective [Unknown]
